FAERS Safety Report 5684939-5 (Version None)
Quarter: 2008Q1

REPORT INFORMATION
  Report Type: 
  Country: None (occurrence: None)
  Receive Date: 20080328
  Receipt Date: 20080110
  Transmission Date: 20080703
  Serious: Yes (Life-Threatening, Other)
  Sender: FDA-Public Use
  Company Number: US-BRISTOL-MYERS SQUIBB COMPANY-14036743

PATIENT
  Age: 76 Year
  Sex: Male
  Weight: 84 kg

DRUGS (7)
  1. ERBITUX [Suspect]
     Indication: THROAT CANCER
     Dates: start: 20080108
  2. ASPIRIN [Concomitant]
  3. VYTORIN [Concomitant]
  4. CARAFATE [Concomitant]
  5. CILOSTAZOL [Concomitant]
  6. AMLODIPINE [Concomitant]
  7. OMEPRAZOLE [Concomitant]

REACTIONS (2)
  - BURNING SENSATION [None]
  - CARDIAC ARREST [None]
